FAERS Safety Report 6652430-5 (Version None)
Quarter: 2010Q1

REPORT INFORMATION
  Report Type: 
  Country: None (occurrence: None)
  Receive Date: 20100323
  Receipt Date: 20100310
  Transmission Date: 20100710
  Serious: No
  Sender: FDA-Public Use
  Company Number: 2010AP000485

PATIENT

DRUGS (1)
  1. LAMOTRIGINE [Suspect]
     Dosage: TRPL
     Route: 064

REACTIONS (3)
  - COARCTATION OF THE AORTA [None]
  - CONGENITAL CARDIOVASCULAR ANOMALY [None]
  - MATERNAL DRUGS AFFECTING FOETUS [None]
